FAERS Safety Report 20173757 (Version 2)
Quarter: 2022Q1

REPORT INFORMATION
  Report Type: Report from Study
  Country: US (occurrence: US)
  Receive Date: 20211212
  Receipt Date: 20220120
  Transmission Date: 20220424
  Serious: No
  Sender: FDA-Public Use
  Company Number: US-BoehringerIngelheim-2021-BI-143132

PATIENT
  Age: 71 Year
  Sex: Female

DRUGS (3)
  1. OFEV [Suspect]
     Active Substance: NINTEDANIB
     Indication: Idiopathic pulmonary fibrosis
     Route: 048
     Dates: start: 20211130
  2. COLACE [Suspect]
     Active Substance: DOCUSATE SODIUM
     Indication: Constipation
  3. MIRALAX [Suspect]
     Active Substance: POLYETHYLENE GLYCOL 3350
     Indication: Constipation

REACTIONS (3)
  - Constipation [Recovered/Resolved]
  - Constipation [Not Recovered/Not Resolved]
  - Heart rate decreased [Unknown]

NARRATIVE: CASE EVENT DATE: 20211210
